FAERS Safety Report 4525604-7 (Version None)
Quarter: 2004Q4

REPORT INFORMATION
  Report Type: 
  Country: None (occurrence: None)
  Receive Date: 20041116
  Receipt Date: 20040901
  Transmission Date: 20050328
  Serious: No
  Sender: FDA-Public Use
  Company Number: S04-USA-06193-01

PATIENT
  Age: 87 Year
  Sex: Female

DRUGS (8)
  1. NAMENDA [Suspect]
     Dosage: 5 MG QD PO
     Route: 048
     Dates: start: 20040717, end: 20040723
  2. NAMENDA [Suspect]
     Dosage: 5 MG BID PO
     Route: 048
     Dates: start: 20040724, end: 20040730
  3. NAMENDA [Suspect]
     Dosage: 10 MG QAM PO
     Route: 048
     Dates: start: 20040731, end: 20040806
  4. NAMENDA [Suspect]
     Dosage: 5 MG QHS PO
     Route: 048
     Dates: start: 20040731, end: 20040806
  5. NAMENDA [Suspect]
     Dosage: 10 MG BID PO
     Route: 048
     Dates: start: 20040807, end: 20040827
  6. NAMENDA [Suspect]
     Dosage: 10 MG QAM PO
     Route: 048
     Dates: start: 20040828
  7. NAMENDA [Suspect]
     Dosage: 5 MG QD PO
     Route: 048
     Dates: start: 20040828
  8. ARICEPT [Concomitant]

REACTIONS (3)
  - ABNORMAL BEHAVIOUR [None]
  - CONFUSIONAL STATE [None]
  - RESTLESSNESS [None]
